FAERS Safety Report 23988601 (Version 4)
Quarter: 2025Q1

REPORT INFORMATION
  Report Type: Report from Study
  Country: US (occurrence: US)
  Receive Date: 20240619
  Receipt Date: 20250203
  Transmission Date: 20250408
  Serious: Yes (Hospitalization)
  Sender: TAKEDA
  Company Number: US-TAKEDA-2024TUS056239

PATIENT
  Sex: Male

DRUGS (8)
  1. PONATINIB [Suspect]
     Active Substance: PONATINIB
     Indication: Acute lymphocytic leukaemia
     Dosage: 45 MILLIGRAM, QD
  2. PONATINIB [Suspect]
     Active Substance: PONATINIB
     Dosage: 45 MILLIGRAM, QD
  3. PONATINIB [Suspect]
     Active Substance: PONATINIB
     Dosage: 45 MILLIGRAM, QD
  4. PONATINIB [Suspect]
     Active Substance: PONATINIB
     Dosage: 45 MILLIGRAM, QD
  5. PEPCID AC [Concomitant]
     Active Substance: FAMOTIDINE
  6. ACYCLOVIR [Concomitant]
     Active Substance: ACYCLOVIR
  7. TADALAFIL [Concomitant]
     Active Substance: TADALAFIL
  8. ASPIRIN [Concomitant]
     Active Substance: ASPIRIN

REACTIONS (8)
  - Post procedural complication [Unknown]
  - Flatulence [Unknown]
  - Abdominal distension [Unknown]
  - Fluid retention [Unknown]
  - Constipation [Unknown]
  - Product dose omission issue [Unknown]
  - Off label use [Unknown]
  - Rash [Unknown]
